FAERS Safety Report 8498307 (Version 2)
Quarter: 2012Q4

REPORT INFORMATION
  Report Type: 
  Country: FI (occurrence: FI)
  Receive Date: 20120406
  Receipt Date: 20121120
  Transmission Date: 20130627
  Serious: Yes (Disabling, Other)
  Sender: FDA-Public Use
  Company Number: FI-PFIZER INC-2012083780

PATIENT
  Age: 66 Year
  Sex: Male

DRUGS (5)
  1. LIPITOR [Suspect]
     Indication: POST MI
     Dosage: 20 mg, 1x/day
     Dates: start: 2001, end: 2012
  2. ADALAT OROS [Concomitant]
     Dosage: 60 mg, 1x/day
  3. LINATIL [Concomitant]
     Dosage: 10 mg, 1x/day
  4. PARA-TABS [Concomitant]
     Dosage: 1 g, 1-3 times a day as needed
  5. BURANA [Concomitant]
     Dosage: as needed

REACTIONS (2)
  - Arthritis [Recovered/Resolved]
  - Joint injury [Recovered/Resolved]
